FAERS Safety Report 6028024-1 (Version None)
Quarter: 2008Q4

REPORT INFORMATION
  Report Type: 
  Country: None (occurrence: None)
  Receive Date: 20081224
  Receipt Date: 20081217
  Transmission Date: 20090506
  Serious: Yes (Death)
  Sender: FDA-Public Use
  Company Number: WAES 0812USA04047

PATIENT

DRUGS (6)
  1. DECADRON [Suspect]
     Indication: MANTLE CELL LYMPHOMA
     Dosage: PO
     Route: 048
  2. CYCLOPHOSPHAMIDE [Concomitant]
  3. CYTARABINE (+) METHOTREXATE [Concomitant]
  4. DOXORUBICIN HCL [Concomitant]
  5. RITUXIMAB [Concomitant]
  6. VINCRISTINE SULFATE [Concomitant]

REACTIONS (1)
  - SEPTIC SHOCK [None]
